FAERS Safety Report 24805597 (Version 1)
Quarter: 2025Q1

REPORT INFORMATION
  Report Type: Report from Study
  Country: US (occurrence: US)
  Receive Date: 20250103
  Receipt Date: 20250103
  Transmission Date: 20250409
  Serious: Yes (Hospitalization)
  Sender: PFIZER
  Company Number: US-PFIZER INC-202400224005

PATIENT
  Age: 84 Year
  Sex: Male

DRUGS (25)
  1. VYNDAMAX [Suspect]
     Active Substance: TAFAMIDIS
     Dosage: 61MG CAPSULE TAKE 1 CAPSULE DAILY
     Route: 048
     Dates: start: 20240204
  2. VYNDAMAX [Suspect]
     Active Substance: TAFAMIDIS
     Dosage: 61 MG, DAILY
     Dates: start: 202403
  3. VYNDAMAX [Suspect]
     Active Substance: TAFAMIDIS
     Dosage: 61 MG, DAILY (TOOK 61 MG DAILY ORALLY)
     Route: 048
     Dates: start: 20240321
  4. ACETAMINOPHEN\HYDROCODONE [Concomitant]
     Active Substance: ACETAMINOPHEN\HYDROCODONE
  5. TIZANIDINE [Concomitant]
     Active Substance: TIZANIDINE
  6. METOPROLOL [Concomitant]
     Active Substance: METOPROLOL
  7. PRAVASTATIN SODIUM [Concomitant]
     Active Substance: PRAVASTATIN SODIUM
  8. TERAZOSIN [Concomitant]
     Active Substance: TERAZOSIN HYDROCHLORIDE
  9. BUMETANIDE [Concomitant]
     Active Substance: BUMETANIDE
  10. XARELTO [Concomitant]
     Active Substance: RIVAROXABAN
  11. COLACE [Concomitant]
     Active Substance: DOCUSATE SODIUM
  12. PSYLLIUM HUSK [Concomitant]
     Active Substance: PSYLLIUM HUSK
  13. MIRALAX [Concomitant]
     Active Substance: POLYETHYLENE GLYCOL 3350
  14. NICOTINE [Concomitant]
     Active Substance: NICOTINE
  15. VITAMIN B [Concomitant]
     Active Substance: VITAMIN B
  16. CALCIUM ASCORBATE [Concomitant]
     Active Substance: CALCIUM ASCORBATE
  17. VITAMIN D3 [Concomitant]
     Active Substance: CHOLECALCIFEROL
  18. MULTI VITAMIN [ASCORBIC ACID;FOLIC ACID;NICOTINIC ACID;PYRIDOXINE HYDR [Concomitant]
  19. METOPROLOL TARTRATE [Concomitant]
     Active Substance: METOPROLOL TARTRATE
  20. PRAVASTATIN [Concomitant]
     Active Substance: PRAVASTATIN
  21. HYDRALAZINE HCL [Concomitant]
     Active Substance: HYDRALAZINE HYDROCHLORIDE
     Dates: end: 2024
  22. STOOL SOFTENER (DOCUSATE) [Concomitant]
     Active Substance: DOCUSATE
  23. VITAMIN B12 [Concomitant]
     Active Substance: CYANOCOBALAMIN
  24. HYDRALAZINE [Concomitant]
     Active Substance: HYDRALAZINE HYDROCHLORIDE
  25. FIBER THERAPY (CALCIUM POLYCARBOPHIL) [Concomitant]
     Active Substance: CALCIUM POLYCARBOPHIL

REACTIONS (11)
  - COVID-19 [Recovering/Resolving]
  - Fall [Recovering/Resolving]
  - Tremor [Recovering/Resolving]
  - Asthenia [Recovering/Resolving]
  - Dehydration [Recovering/Resolving]
  - Eye movement disorder [Recovering/Resolving]
  - Hypotension [Not Recovered/Not Resolved]
  - Neck pain [Unknown]
  - Arthritis [Recovered/Resolved]
  - Feeling abnormal [Unknown]
  - Derealisation [Unknown]

NARRATIVE: CASE EVENT DATE: 20240101
